FAERS Safety Report 4666347-9 (Version None)
Quarter: 2005Q2

REPORT INFORMATION
  Report Type: 
  Country: None (occurrence: None)
  Receive Date: 20050518
  Receipt Date: 20050506
  Transmission Date: 20051028
  Serious: Yes (Other)
  Sender: FDA-Public Use
  Company Number: HQWYE595409MAY05

PATIENT
  Age: 24 Year
  Sex: Male
  Weight: 61.29 kg

DRUGS (2)
  1. PRIMATENE MIST [Suspect]
     Indication: ASTHMA
     Dosage: 1 PUFF AS NEEDED, INHALATION
     Route: 055
     Dates: start: 20050505, end: 20050506
  2. TUSSIN DM (DEXTROMETHORPHAN  HYDROBROMIDE/GUAIFENESIN, ) [Suspect]
     Indication: NASOPHARYNGITIS
     Dosage: TWO TEASPONS AS NEEDED, ORAL
     Route: 048
     Dates: start: 20050505

REACTIONS (2)
  - DIZZINESS [None]
  - LOSS OF CONSCIOUSNESS [None]
